FAERS Safety Report 25289111 (Version 1)
Quarter: 2025Q2

REPORT INFORMATION
  Report Type: Spontaneous
  Country: US (occurrence: US)
  Receive Date: 20250509
  Receipt Date: 20250509
  Transmission Date: 20250716
  Serious: Yes (Hospitalization)
  Sender: NOVARTIS
  Company Number: US-002147023-NVSC2025US071993

PATIENT
  Sex: Female

DRUGS (1)
  1. FABHALTA [Suspect]
     Active Substance: IPTACOPAN HYDROCHLORIDE
     Indication: Paroxysmal nocturnal haemoglobinuria
     Route: 048
     Dates: start: 202406, end: 202501

REACTIONS (8)
  - Breakthrough haemolysis [Not Recovered/Not Resolved]
  - Haemoglobin decreased [Unknown]
  - Blood lactate dehydrogenase increased [Unknown]
  - Reticulocyte count increased [Unknown]
  - Haptoglobin abnormal [Unknown]
  - Headache [Unknown]
  - Pyrexia [Unknown]
  - Product supply issue [Unknown]
